FAERS Safety Report 6164671-4 (Version None)
Quarter: 2009Q2

REPORT INFORMATION
  Report Type: 
  Country: None (occurrence: None)
  Receive Date: 20090423
  Receipt Date: 20090311
  Transmission Date: 20091009
  Serious: No
  Sender: FDA-Public Use
  Company Number: US-KINGPHARMUSA00001-K200900274

PATIENT
  Sex: Female
  Weight: 77.098 kg

DRUGS (6)
  1. TAPAZOLE [Suspect]
     Indication: BASEDOW'S DISEASE
     Dosage: 30 MG, QD
     Route: 048
     Dates: start: 20081205
  2. TAPAZOLE [Suspect]
     Dosage: 15 MG, QD
     Route: 048
     Dates: start: 20090105, end: 20090101
  3. TAPAZOLE [Suspect]
     Dosage: 5 MG, QD
     Route: 048
     Dates: start: 20090101
  4. ASPIRIN [Concomitant]
     Dosage: UNK
  5. MAXALT                             /01406501/ [Concomitant]
     Indication: MIGRAINE
     Dosage: UNK
  6. ATENOLOL [Concomitant]
     Indication: PALPITATIONS
     Dosage: UNK
     Dates: end: 20090105

REACTIONS (2)
  - HYPOTHYROIDISM [None]
  - PARAESTHESIA [None]
